FAERS Safety Report 9433830 (Version 1)
Quarter: 2013Q3

REPORT INFORMATION
  Report Type: Spontaneous
  Country: BR (occurrence: BR)
  Receive Date: 20130731
  Receipt Date: 20130731
  Transmission Date: 20140515
  Serious: Yes (Other)
  Sender: FDA-Public Use
  Company Number: BR-ABBOTT-13X-020-1126656-00

PATIENT
  Age: 57 Year
  Sex: Female
  Weight: 66 kg

DRUGS (8)
  1. DEPAKENE [Suspect]
     Indication: DEPRESSION
     Route: 048
     Dates: start: 201305
  2. RIVOTRIL [Concomitant]
     Indication: DEPRESSION
     Route: 048
     Dates: start: 201303
  3. FLUOXETINE [Concomitant]
     Indication: DEPRESSION
     Route: 048
     Dates: start: 201211
  4. CHLORPROMAZINE [Concomitant]
     Indication: SLEEP DISORDER THERAPY
     Route: 048
     Dates: start: 201303
  5. ACETYLSALICYLIC ACID [Concomitant]
     Indication: CARDIAC DISORDER
     Route: 048
     Dates: start: 201210
  6. ENALAPRIL [Concomitant]
     Indication: DIABETES MELLITUS
     Route: 048
     Dates: start: 2011
  7. NIFEDIPINE [Concomitant]
     Indication: HYPERTENSION
     Route: 048
     Dates: start: 201305
  8. CAPTOPRIL [Concomitant]
     Indication: HYPERTENSION
     Dosage: 50 MG, 1 TABLET IN THE MORNING AND 1 AT NIGHT
     Dates: start: 201305

REACTIONS (2)
  - Haemoptysis [Recovering/Resolving]
  - Intervertebral disc protrusion [Not Recovered/Not Resolved]
